FAERS Safety Report 19032453 (Version 1)
Quarter: 2021Q1

REPORT INFORMATION
  Report Type: Spontaneous
  Country: US (occurrence: US)
  Receive Date: 20210319
  Receipt Date: 20210319
  Transmission Date: 20210420
  Serious: Yes (Death)
  Sender: FDA-Public Use
  Company Number: US-BAYER-2021-106611

PATIENT
  Age: 67 Year
  Sex: Female

DRUGS (2)
  1. REGORAFENIB. [Suspect]
     Active Substance: REGORAFENIB
     Dosage: DAILY DOSE 80 MG
  2. METHOTREXATE. [Suspect]
     Active Substance: METHOTREXATE

REACTIONS (2)
  - Death [Fatal]
  - Off label use [None]

NARRATIVE: CASE EVENT DATE: 20210306
